FAERS Safety Report 12296877 (Version 6)
Quarter: 2016Q2

REPORT INFORMATION
  Report Type: Report from Study
  Country: CN (occurrence: CN)
  Receive Date: 20160422
  Receipt Date: 20160623
  Transmission Date: 20160815
  Serious: Yes (Hospitalization, Other)
  Sender: FDA-Public Use
  Company Number: CN-GLAXOSMITHKLINE-CN2016GSK053269

PATIENT
  Age: 27 Year
  Sex: Female
  Weight: 49 kg

DRUGS (4)
  1. BELIMUMAB [Suspect]
     Active Substance: BELIMUMAB
     Dosage: UNK
     Dates: start: 20150213
  2. BIFIDOBACTERIUM [Concomitant]
     Active Substance: BIFIDOBACTERIUM LONGUM
     Indication: ENTERITIS
     Dosage: 0.42 G, TID
     Route: 048
     Dates: start: 20160415, end: 20160418
  3. SMECTITE POWDER [Concomitant]
     Indication: ENTERITIS
     Dosage: 3 G, TID
     Route: 048
     Dates: start: 20160415, end: 20160416
  4. BELIMUMAB [Suspect]
     Active Substance: BELIMUMAB
     Indication: SYSTEMIC LUPUS ERYTHEMATOSUS
     Dosage: 10 MG/KG, UNK
     Route: 042
     Dates: start: 20140321

REACTIONS (1)
  - Granulocytopenia [Recovered/Resolved]

NARRATIVE: CASE EVENT DATE: 20160414
